FAERS Safety Report 16179324 (Version 2)
Quarter: 2019Q2

REPORT INFORMATION
  Report Type: Spontaneous
  Country: AT (occurrence: AT)
  Receive Date: 20190410
  Receipt Date: 20190416
  Transmission Date: 20190711
  Serious: Yes (Hospitalization, Other)
  Sender: FDA-Public Use
  Company Number: AT-INDIVIOR LIMITED-INDV-118234-2019

PATIENT
  Age: 54 Year
  Sex: Male
  Weight: 74 kg

DRUGS (15)
  1. DABRAFENIB [Suspect]
     Active Substance: DABRAFENIB
     Dosage: 200 MILLIGRAM, QD
     Route: 048
     Dates: start: 20180828, end: 20181125
  2. DABRAFENIB [Suspect]
     Active Substance: DABRAFENIB
     Dosage: 200 MILLIGRAM, QD
     Route: 048
     Dates: start: 20181210, end: 20190225
  3. CELECOXIB. [Suspect]
     Active Substance: CELECOXIB
     Indication: PAIN IN EXTREMITY
     Dosage: 200 MILLIGRAM, QD
     Route: 065
     Dates: start: 20190219, end: 20190301
  4. DABRAFENIB [Suspect]
     Active Substance: DABRAFENIB
     Indication: MALIGNANT MELANOMA
     Dosage: 300 MILLIGRAM, QD
     Route: 048
     Dates: start: 20180521, end: 20180530
  5. MEKINIST [Suspect]
     Active Substance: TRAMETINIB DIMETHYL SULFOXIDE
     Dosage: 2 MILLIGRAM, QD
     Route: 048
     Dates: start: 20180622, end: 20180728
  6. MEKINIST [Suspect]
     Active Substance: TRAMETINIB DIMETHYL SULFOXIDE
     Dosage: 2 MILLIGRAM, QD
     Route: 048
     Dates: start: 20180808, end: 20180821
  7. CELECOXIB. [Suspect]
     Active Substance: CELECOXIB
     Indication: MUSCULOSKELETAL PAIN
     Dosage: UNK
     Route: 065
  8. DABRAFENIB [Suspect]
     Active Substance: DABRAFENIB
     Dosage: 200 MILLIGRAM, QD
     Route: 048
     Dates: start: 20180808, end: 20180821
  9. MEKINIST [Suspect]
     Active Substance: TRAMETINIB DIMETHYL SULFOXIDE
     Indication: MALIGNANT MELANOMA
     Dosage: 2 MILLIGRAM, QD
     Route: 048
     Dates: start: 20180521, end: 20180530
  10. MEKINIST [Suspect]
     Active Substance: TRAMETINIB DIMETHYL SULFOXIDE
     Dosage: 2 MILLIGRAM, DAILY
     Route: 048
     Dates: start: 20181210, end: 20190225
  11. TEMGESIC [Suspect]
     Active Substance: BUPRENORPHINE HYDROCHLORIDE
     Indication: PAIN PROPHYLAXIS
     Dosage: 0.2 MG, UNK
     Route: 065
     Dates: start: 20190219, end: 20190220
  12. DABRAFENIB [Suspect]
     Active Substance: DABRAFENIB
     Dosage: 300 MILLIGRAM, QD
     Route: 048
     Dates: start: 20180622, end: 20180728
  13. MEKINIST [Suspect]
     Active Substance: TRAMETINIB DIMETHYL SULFOXIDE
     Dosage: 2 MILLIGRAM, QD
     Route: 048
     Dates: start: 20180828, end: 20181125
  14. XGEVA [Suspect]
     Active Substance: DENOSUMAB
     Indication: PROPHYLAXIS
     Dosage: 120 MG, UNK
     Route: 065
     Dates: start: 201806, end: 20190225
  15. CELECOXIB. [Suspect]
     Active Substance: CELECOXIB
     Indication: CERVICOBRACHIAL SYNDROME

REACTIONS (19)
  - Malignant neoplasm progression [Unknown]
  - Musculoskeletal pain [Recovered/Resolved]
  - Exposed bone in jaw [Not Recovered/Not Resolved]
  - Fatigue [Recovered/Resolved]
  - Rash [Recovered/Resolved]
  - Sputum discoloured [Recovered/Resolved]
  - Pain in extremity [Not Recovered/Not Resolved]
  - Vomiting [Recovered/Resolved]
  - Flatulence [Recovered/Resolved]
  - Diarrhoea [Recovered/Resolved]
  - Neutropenia [Recovered/Resolved]
  - Malignant melanoma [Unknown]
  - Osteonecrosis of jaw [Not Recovered/Not Resolved]
  - Adrenal insufficiency [Not Recovered/Not Resolved]
  - Nausea [Recovered/Resolved]
  - Leukopenia [Recovered/Resolved]
  - Pyrexia [Recovered/Resolved]
  - Dysphonia [Recovered/Resolved]
  - Cervicobrachial syndrome [Not Recovered/Not Resolved]

NARRATIVE: CASE EVENT DATE: 20180531
